FAERS Safety Report 4681258-0 (Version None)
Quarter: 2005Q2

REPORT INFORMATION
  Report Type: 
  Country: None (occurrence: None)
  Receive Date: 20050603
  Receipt Date: 20050519
  Transmission Date: 20051028
  Serious: Yes (Hospitalization)
  Sender: FDA-Public Use
  Company Number: US-JNJFOC-20050507136

PATIENT
  Sex: Female

DRUGS (5)
  1. MOTRIN [Suspect]
  2. MOTRIN [Suspect]
     Indication: OSTEOARTHRITIS
  3. INDOCIN [Suspect]
  4. INDOCIN [Suspect]
     Indication: OSTEOARTHRITIS
  5. OTHER PAIN MEDICATIONS [Concomitant]

REACTIONS (1)
  - SMALL INTESTINAL OBSTRUCTION [None]
